FAERS Safety Report 16850178 (Version 2)
Quarter: 2019Q4

REPORT INFORMATION
  Report Type: Report from Study
  Country: IR (occurrence: IR)
  Receive Date: 20190925
  Receipt Date: 20191002
  Transmission Date: 20200122
  Serious: Yes (Other)
  Sender: FDA-Public Use
  Company Number: IR-PFIZER INC-2019410065

PATIENT
  Age: 25 Year
  Sex: Female

DRUGS (3)
  1. CINNOVEX [Suspect]
     Active Substance: INTERFERON BETA-1A
     Indication: MULTIPLE SCLEROSIS
     Dosage: UNK UNK, WEEKLY
     Dates: start: 2007
  2. PREDNISOLONE. [Suspect]
     Active Substance: PREDNISOLONE
     Indication: MULTIPLE SCLEROSIS
     Dosage: 1 MG/KG, (TAPERED AND DISCONTINUED)
     Route: 048
     Dates: start: 2007
  3. METHYLPREDNISOLONE SODIUM SUCCINATE. [Suspect]
     Active Substance: METHYLPREDNISOLONE SODIUM SUCCINATE
     Indication: MULTIPLE SCLEROSIS
     Dosage: 1 G, DAILY (PULSE NUMBER 1, ACCUMULATIVE DOSE 5 GRAMS)
     Dates: start: 20070727

REACTIONS (1)
  - Osteonecrosis [Unknown]
